FAERS Safety Report 14747987 (Version 1)
Quarter: 2018Q2

REPORT INFORMATION
  Report Type: Spontaneous
  Country: CA (occurrence: CA)
  Receive Date: 20180411
  Receipt Date: 20180411
  Transmission Date: 20180711
  Serious: Yes (Other)
  Sender: FDA-Public Use
  Company Number: CA-PFIZER INC-2018141090

PATIENT
  Age: 45 Year
  Sex: Female

DRUGS (5)
  1. METRAZOLE [Suspect]
     Active Substance: METRONIDAZOLE
     Dosage: 40 MG, UNK
  2. TYLENOL [Suspect]
     Active Substance: ACETAMINOPHEN
     Dosage: UNK
  3. TELMISARTAN. [Suspect]
     Active Substance: TELMISARTAN
     Dosage: 40 MG, UNK
  4. AMLODIPINE BESILATE [Suspect]
     Active Substance: AMLODIPINE BESYLATE
     Dosage: 7.5 MG, UNK
  5. ADVIL [Suspect]
     Active Substance: IBUPROFEN
     Dosage: UNK

REACTIONS (1)
  - Subcutaneous abscess [Unknown]
